FAERS Safety Report 18615645 (Version 1)
Quarter: 2020Q4

REPORT INFORMATION
  Report Type: Spontaneous
  Country: JP (occurrence: JP)
  Receive Date: 20201214
  Receipt Date: 20201214
  Transmission Date: 20210114
  Serious: Yes (Hospitalization, Other)
  Sender: FDA-Public Use
  Company Number: JP-009507513-2010JPN000477J

PATIENT
  Age: 8 Decade
  Sex: Male

DRUGS (3)
  1. INLYTA [Concomitant]
     Active Substance: AXITINIB
     Indication: RENAL CELL CARCINOMA STAGE IV
     Dosage: UNK
     Route: 048
     Dates: start: 20200918, end: 202010
  2. KEYTRUDA [Suspect]
     Active Substance: PEMBROLIZUMAB
     Indication: RENAL CELL CARCINOMA STAGE IV
     Dosage: 200 MILLIGRAM, Q3W
     Route: 041
     Dates: start: 20200918, end: 202011
  3. INLYTA [Concomitant]
     Active Substance: AXITINIB
     Dosage: UNK
     Route: 048
     Dates: start: 202010, end: 202011

REACTIONS (2)
  - Pyrexia [Recovered/Resolved]
  - Immune-mediated hepatic disorder [Recovering/Resolving]

NARRATIVE: CASE EVENT DATE: 20201002
